FAERS Safety Report 14260309 (Version 1)
Quarter: 2017Q4

REPORT INFORMATION
  Report Type: Spontaneous
  Country: BR (occurrence: BR)
  Receive Date: 20171207
  Receipt Date: 20171207
  Transmission Date: 20180321
  Serious: Yes (Other)
  Sender: FDA-Public Use
  Company Number: BR-SA-2017SA240932

PATIENT
  Age: 31 Year
  Sex: Female

DRUGS (1)
  1. ALEMTUZUMAB [Suspect]
     Active Substance: ALEMTUZUMAB
     Indication: MULTIPLE SCLEROSIS
     Route: 041
     Dates: start: 201701

REACTIONS (6)
  - Trigeminal neuralgia [Recovering/Resolving]
  - Nuclear magnetic resonance imaging abnormal [Unknown]
  - Quadriparesis [Recovering/Resolving]
  - Cognitive disorder [Recovering/Resolving]
  - Mental impairment [Recovering/Resolving]
  - Apraxia [Recovering/Resolving]

NARRATIVE: CASE EVENT DATE: 201703
